FAERS Safety Report 9505367 (Version 1)
Quarter: 2013Q1

REPORT INFORMATION
  Report Type: Spontaneous
  Country: US (occurrence: None)
  Receive Date: 20130220
  Receipt Date: 20130220
  Transmission Date: 20140127
  Serious: No
  Sender: FDA-Public Use
  Company Number: 1000040630

PATIENT
  Age: 64 Year
  Sex: Male

DRUGS (4)
  1. VIIBRYD (VILAZODONE HYDROCHLORIDE) (TABLETS) [Suspect]
     Indication: JOINT SWELLING
     Route: 048
     Dates: start: 201210, end: 201211
  2. LISINOPRIL (LISINOPRIL) (LISINOPRIL) [Concomitant]
  3. HYDROCHLOROTHIAZIDE (HYDROCHLOROTHIAZIDE) (HYDROCHLOROTHIAZIDE) [Concomitant]
  4. LIPITOR (ATORVASTATIN CALCIUM) (ATORVASTATIN CALCIUM) [Concomitant]

REACTIONS (5)
  - Abdominal distension [None]
  - Flatulence [None]
  - Diarrhoea [None]
  - Abdominal discomfort [None]
  - Off label use [None]
